FAERS Safety Report 10785440 (Version 1)
Quarter: 2015Q1

REPORT INFORMATION
  Report Type: Spontaneous
  Country: US (occurrence: None)
  Receive Date: 20150210
  Receipt Date: 20150210
  Transmission Date: 20150721
  Serious: Yes (Death)
  Sender: FDA-Public Use
  Company Number: None

PATIENT
  Age: 70 Year
  Sex: Male

DRUGS (10)
  1. OXYCODONE/ACETAMINOPHEN [Concomitant]
     Active Substance: ACETAMINOPHEN\OXYCODONE HYDROCHLORIDE
  2. PANTOPRAZOLE [Concomitant]
     Active Substance: PANTOPRAZOLE SODIUM
  3. DIAZEPAM. [Concomitant]
     Active Substance: DIAZEPAM
  4. PREDNISONE. [Concomitant]
     Active Substance: PREDNISONE
  5. OXYCODONE [Concomitant]
     Active Substance: OXYCODONE
  6. DURAGESIC [Concomitant]
     Active Substance: FENTANYL
  7. FENTANYL. [Concomitant]
     Active Substance: FENTANYL
  8. DOCQLACE [Concomitant]
     Active Substance: DOCUSATE SODIUM
  9. METHOCARBAMOL. [Concomitant]
     Active Substance: METHOCARBAMOL
  10. SUTENT [Suspect]
     Active Substance: SUNITINIB MALATE
     Indication: NEOPLASM MALIGNANT
     Route: 048
     Dates: start: 20141211, end: 20150108

REACTIONS (1)
  - Death [None]

NARRATIVE: CASE EVENT DATE: 20150108
